FAERS Safety Report 12880519 (Version 1)
Quarter: 2016Q4

REPORT INFORMATION
  Report Type: Spontaneous
  Country: US (occurrence: US)
  Receive Date: 20161025
  Receipt Date: 20161025
  Transmission Date: 20170207
  Serious: No
  Sender: FDA-Public Use
  Company Number: US-BAUSCH-BL-2016-001038

PATIENT
  Sex: Female
  Weight: 73.48 kg

DRUGS (37)
  1. PHENOBARBITAL. [Suspect]
     Active Substance: PHENOBARBITAL
     Indication: PRODUCT USED FOR UNKNOWN INDICATION
     Route: 065
  2. SINGULAIR [Concomitant]
     Active Substance: MONTELUKAST SODIUM
     Indication: ASTHMA
     Route: 048
     Dates: start: 201510
  3. METFORMIN EXTENDED RELEASE [Concomitant]
     Indication: POLYCYSTIC OVARIES
     Dosage: 1000MG ORALLY IN THE MORNING, 1500MG ORALLY IN THE EVENING
     Route: 048
     Dates: start: 2010
  4. EPIPEN [Concomitant]
     Active Substance: EPINEPHRINE
     Indication: ASTHMA
     Dosage: ONE PEN DOSE
  5. MULTIVITAMINS [Concomitant]
     Active Substance: VITAMINS
     Indication: SUPPLEMENTATION THERAPY
     Dates: start: 201310
  6. ALIGN DAILY PROBIOTIC SUPPLEMENT [Concomitant]
     Indication: URINARY TRACT INFECTION
  7. DIPHENOXYLATE/ATROPINE [Concomitant]
     Active Substance: ATROPINE\DIPHENOXYLATE
     Indication: PRODUCT USED FOR UNKNOWN INDICATION
  8. FLOVENT [Concomitant]
     Active Substance: FLUTICASONE PROPIONATE
     Indication: ASTHMA
     Dosage: 1-2 PUFFS TWICE DAILY
     Dates: start: 201510
  9. THEOPHYLLINE EXTENDED RELEASE [Concomitant]
     Active Substance: THEOPHYLLINE ANHYDROUS
     Indication: ASTHMA
     Route: 048
     Dates: start: 201510
  10. NALTREXONE [Concomitant]
     Active Substance: NALTREXONE
     Indication: ROUTINE HEALTH MAINTENANCE
     Dosage: COMPOUNDED
     Dates: start: 201206
  11. VITAMIN K [Concomitant]
     Active Substance: PHYTONADIONE
     Indication: VITAMIN K DEFICIENCY
     Dates: start: 2009
  12. DHEA [Concomitant]
     Active Substance: PRASTERONE
     Indication: ADRENAL DISORDER
     Route: 048
     Dates: start: 200905
  13. ALIGN DAILY PROBIOTIC SUPPLEMENT [Concomitant]
     Indication: DUMPING SYNDROME
     Route: 048
  14. LANSOPRAZOLE. [Concomitant]
     Active Substance: LANSOPRAZOLE
     Indication: GASTROOESOPHAGEAL REFLUX DISEASE
     Route: 048
  15. SOLU-CORTEF [Concomitant]
     Active Substance: HYDROCORTISONE SODIUM SUCCINATE
     Indication: ADRENOCORTICAL INSUFFICIENCY ACUTE
     Dosage: CAN BE TITRATED DOWN FROM 2ML TO 0.5ML BASED ON BODY NEEDS. RESCUE?MEDICATION.
     Dates: start: 201308
  16. EPIPEN [Concomitant]
     Active Substance: EPINEPHRINE
     Indication: FOOD ALLERGY
  17. ASTRAGALUS [Concomitant]
     Indication: IMMUNE ENHANCEMENT THERAPY
     Route: 048
     Dates: start: 200905
  18. OMEGA-3 ACIDS [Concomitant]
     Active Substance: OMEGA-3 FATTY ACIDS
     Indication: DYSPEPSIA
     Dosage: 660MG DHA/270MG EPA
     Route: 048
     Dates: start: 2013
  19. METFORMIN EXTENDED RELEASE [Concomitant]
     Indication: INSULIN RESISTANCE
  20. VITAMIN B12 [Concomitant]
     Active Substance: CYANOCOBALAMIN
     Indication: VITAMIN B12 DEFICIENCY
     Route: 060
     Dates: start: 2013
  21. CALCIUM-MAGNESIUM BLEND [Concomitant]
     Indication: MAGNESIUM DEFICIENCY
     Dosage: 250MG CALCIUM-50MG MAGNESIUM
     Route: 048
     Dates: start: 2013
  22. VITAMIN C [Concomitant]
     Active Substance: ASCORBIC ACID
     Indication: INFECTION PROPHYLAXIS
     Route: 048
  23. FLUDROCORTISONE [Concomitant]
     Active Substance: FLUDROCORTISONE
     Indication: SODIUM RETENTION
     Route: 048
     Dates: start: 201506
  24. ALBUTEROL. [Concomitant]
     Active Substance: ALBUTEROL
     Indication: ASTHMA
     Dosage: 2 PUFFS AS NEEDED
  25. LIBRAX [Concomitant]
     Active Substance: CHLORDIAZEPOXIDE HYDROCHLORIDE\CLIDINIUM BROMIDE
     Indication: DIARRHOEA
     Dosage: 5-2.5CP CAPSULE UP TO 4 TIMES DAILY WITH MEALS
     Route: 048
     Dates: start: 201302
  26. LIBRAX [Concomitant]
     Active Substance: CHLORDIAZEPOXIDE HYDROCHLORIDE\CLIDINIUM BROMIDE
     Indication: DUMPING SYNDROME
  27. COLESTIPOL [Concomitant]
     Active Substance: COLESTIPOL
     Indication: DIARRHOEA
     Route: 048
     Dates: start: 2011
  28. POTASSIUM [Concomitant]
     Active Substance: POTASSIUM
     Indication: BLOOD POTASSIUM INCREASED
     Route: 048
     Dates: start: 2013
  29. IMITREX [Concomitant]
     Active Substance: SUMATRIPTAN SUCCINATE
     Indication: MIGRAINE
     Dosage: 1 SQUIRT 6-12 TIMES MONTHLY WHEN REQUIRED
  30. IMODIUM [Concomitant]
     Active Substance: LOPERAMIDE HYDROCHLORIDE
     Indication: DIARRHOEA
     Dosage: AS NEEDED
  31. ZOFRAN [Concomitant]
     Active Substance: ONDANSETRON HYDROCHLORIDE
     Indication: PROPHYLAXIS
     Dosage: AS NEEDED
     Route: 048
     Dates: start: 2013
  32. NYSTATIN. [Concomitant]
     Active Substance: NYSTATIN
     Indication: DUMPING SYNDROME
     Dosage: 500,000 UNITS TABLET WITH MEALS
  33. HYDROCORTISONE. [Concomitant]
     Active Substance: HYDROCORTISONE
     Indication: PRODUCT USED FOR UNKNOWN INDICATION
     Dosage: 10MG ORALLY IN THE MORNING, 5MG ORALLY BETWEEN 1500-1700.?DOSE CAN BE TITRATED DOUBLE TO TRIPLE DEPE
     Route: 048
     Dates: start: 200905
  34. VALTREX [Concomitant]
     Active Substance: VALACYCLOVIR HYDROCHLORIDE
     Indication: EPSTEIN-BARR VIRUS INFECTION
     Route: 048
     Dates: start: 201410
  35. ATIVAN [Suspect]
     Active Substance: LORAZEPAM
     Indication: SEIZURE
     Route: 065
     Dates: start: 2015, end: 201510
  36. DIPHENOXYLATE/ATROPINE [Concomitant]
     Active Substance: ATROPINE\DIPHENOXYLATE
     Indication: DIARRHOEA
     Dosage: 1-2 TABLETS THREE TIMES DAILY
     Dates: start: 201501
  37. VITAMIN D3 [Concomitant]
     Active Substance: CHOLECALCIFEROL
     Indication: VITAMIN D DEFICIENCY
     Route: 048
     Dates: start: 2009

REACTIONS (4)
  - Off label use [Unknown]
  - Migraine [Not Recovered/Not Resolved]
  - Amnesia [Unknown]
  - Condition aggravated [Recovered/Resolved]

NARRATIVE: CASE EVENT DATE: 2015
